FAERS Safety Report 8580037-1 (Version None)
Quarter: 2012Q3

REPORT INFORMATION
  Report Type: 
  Country: None (occurrence: None)
  Receive Date: 20120731
  Receipt Date: 20120731
  Transmission Date: 20120928
  Serious: Yes (Other)
  Sender: FDA-Public Use
  Company Number: None

PATIENT
  Age: 77 Year
  Sex: Female
  Weight: 53.6 kg

DRUGS (1)
  1. SESTAMIBI  ? ? [Suspect]

REACTIONS (6)
  - CHEST PAIN [None]
  - DIZZINESS [None]
  - BLOOD PRESSURE SYSTOLIC INCREASED [None]
  - BURNING SENSATION [None]
  - SINUS TACHYCARDIA [None]
  - HEADACHE [None]
